FAERS Safety Report 19181372 (Version 3)
Quarter: 2021Q2

REPORT INFORMATION
  Report Type: Report from Study
  Country: US (occurrence: US)
  Receive Date: 20210426
  Receipt Date: 20210607
  Transmission Date: 20210717
  Serious: Yes (Hospitalization)
  Sender: FDA-Public Use
  Company Number: NVSC2021US093127

PATIENT
  Sex: Female

DRUGS (1)
  1. PIQRAY [Suspect]
     Active Substance: ALPELISIB
     Indication: BREAST CANCER
     Dosage: 300 MG, QD
     Route: 048
     Dates: start: 20210327

REACTIONS (7)
  - Vomiting [Unknown]
  - Intestinal perforation [Unknown]
  - Nausea [Unknown]
  - Pyrexia [Unknown]
  - Diarrhoea [Unknown]
  - Peritonitis bacterial [Unknown]
  - Paracentesis [Unknown]
